FAERS Safety Report 9286619 (Version 1)
Quarter: 2013Q2

REPORT INFORMATION
  Report Type: Spontaneous
  Country: AU (occurrence: AU)
  Receive Date: 20130513
  Receipt Date: 20130513
  Transmission Date: 20140414
  Serious: Yes (Death)
  Sender: FDA-Public Use
  Company Number: PHHY2013AU046515

PATIENT
  Age: 83 Year
  Sex: Male

DRUGS (3)
  1. PHENPROCOUMON [Suspect]
  2. DIGOXIN [Suspect]
  3. FEBUXOSTAT [Suspect]

REACTIONS (2)
  - Hepatic failure [Fatal]
  - Toxicity to various agents [Fatal]
